FAERS Safety Report 5978388-X (Version None)
Quarter: 2008Q4

REPORT INFORMATION
  Report Type: 
  Country: None (occurrence: None)
  Receive Date: 20081204
  Receipt Date: 20081124
  Transmission Date: 20090506
  Serious: Yes (Other)
  Sender: FDA-Public Use
  Company Number: US-JNJFOC-20080805009

PATIENT
  Sex: Female
  Weight: 63.32 kg

DRUGS (11)
  1. REMICADE [Suspect]
     Route: 042
  2. REMICADE [Suspect]
     Route: 042
  3. REMICADE [Suspect]
     Indication: PSORIATIC ARTHROPATHY
     Route: 042
  4. LANTUS [Concomitant]
     Dosage: 15 UNITS DAILY
  5. METFORMIN HCL [Concomitant]
  6. REGLAN [Concomitant]
  7. PERCOCET [Concomitant]
     Dosage: DOSE OF 5/325
  8. REQUIP [Concomitant]
  9. AMBIENT [Concomitant]
  10. VISTARIL [Concomitant]
  11. GRABERPIXN [Concomitant]

REACTIONS (5)
  - BLOOD CHOLESTEROL INCREASED [None]
  - BLOOD TRIGLYCERIDES INCREASED [None]
  - HYPERGLYCAEMIA [None]
  - LOW DENSITY LIPOPROTEIN INCREASED [None]
  - MALAISE [None]
